FAERS Safety Report 6188496-9 (Version None)
Quarter: 2009Q2

REPORT INFORMATION
  Report Type: 
  Country: None (occurrence: None)
  Receive Date: 20090513
  Receipt Date: 20090513
  Transmission Date: 20091009
  Serious: Yes (Other)
  Sender: FDA-Public Use
  Company Number: DE-PFIZER INC-2008155164

PATIENT
  Age: 57 Year

DRUGS (3)
  1. AMLODIPINE [Suspect]
     Indication: HYPERTENSION
     Dosage: 5 MG, 1X/DAY
     Route: 048
     Dates: start: 20050101
  2. ENABETA [Interacting]
     Indication: HYPERTENSION
     Dosage: 10 MG, 1X/DAY
     Route: 048
     Dates: start: 20080601
  3. LERCANIDIPINE [Interacting]
     Dosage: 10 MG, 1X/DAY
     Dates: start: 20080601, end: 20080708

REACTIONS (2)
  - DRUG INTERACTION [None]
  - TACHYCARDIA [None]
